FAERS Safety Report 20723596 (Version 4)
Quarter: 2022Q2

REPORT INFORMATION
  Report Type: Report from Study
  Country: CO (occurrence: CO)
  Receive Date: 20220419
  Receipt Date: 20220608
  Transmission Date: 20220721
  Serious: Yes (Disabling, Other)
  Sender: FDA-Public Use
  Company Number: CO-NOVARTISPH-NVSC2022CO039984

PATIENT
  Age: 42 Year
  Sex: Female
  Weight: 48 kg

DRUGS (16)
  1. COSENTYX [Suspect]
     Active Substance: SECUKINUMAB
     Indication: Psoriasis
     Dosage: IMPREGNATION WEEKLY 0,1,2,3,4
     Route: 065
  2. COSENTYX [Suspect]
     Active Substance: SECUKINUMAB
     Indication: Psoriatic arthropathy
     Dosage: 150 MG, QMO
     Route: 058
     Dates: start: 20211114
  3. COSENTYX [Suspect]
     Active Substance: SECUKINUMAB
     Indication: Ankylosing spondylitis
     Dosage: UNK
     Route: 065
  4. COSENTYX [Suspect]
     Active Substance: SECUKINUMAB
     Indication: Spondyloarthropathy
     Dosage: 150 MG, QMO
     Route: 065
     Dates: start: 20220419
  5. COSENTYX [Suspect]
     Active Substance: SECUKINUMAB
     Dosage: 150 MG
     Route: 065
  6. ESCITALOPRAM [Suspect]
     Active Substance: ESCITALOPRAM OXALATE
     Indication: Product used for unknown indication
     Dosage: 10 MG (HALF TABLET, IN THE MORNING)
     Route: 065
  7. CYCLOBENZAPRINE [Suspect]
     Active Substance: CYCLOBENZAPRINE
     Indication: Product used for unknown indication
     Dosage: 1 DAILY AT BEDTIME
     Route: 065
  8. METHOTREXATE [Concomitant]
     Active Substance: METHOTREXATE
     Indication: Product used for unknown indication
     Dosage: 15 MG (EVERY SATURDAY AND SUNDAY)
     Route: 065
  9. METHOTREXATE [Concomitant]
     Active Substance: METHOTREXATE
     Dosage: 10 MG, QW (4 TABLETS SATURDAYS)
     Route: 065
  10. METHOTREXATE [Concomitant]
     Active Substance: METHOTREXATE
     Dosage: UNK (3 TABLETS ON SATURDAY (7.5))
     Route: 065
  11. METHOTREXATE [Concomitant]
     Active Substance: METHOTREXATE
     Dosage: UNK (3 TABLETS ON SUNDAY (7.5))
     Route: 065
  12. LEVOMEPROMAZINE [Concomitant]
     Active Substance: LEVOMEPROMAZINE
     Indication: Insomnia
     Dosage: 2 DROPS, AT BEDTIME
     Route: 065
  13. FOLIC ACID [Concomitant]
     Active Substance: FOLIC ACID
     Indication: Product used for unknown indication
     Dosage: 1 MG, QD
     Route: 065
  14. DEXAMETHASONE [Concomitant]
     Active Substance: DEXAMETHASONE
     Indication: Drug hypersensitivity
     Dosage: UNK
     Route: 065
  15. DEPRALIN [Concomitant]
     Indication: Depression
     Dosage: 10 MG (HALF TABLET)
     Route: 065
  16. TRIMEBUTINE [Concomitant]
     Active Substance: TRIMEBUTINE
     Indication: Irritable bowel syndrome
     Dosage: UNK UNK, Q12H (1 OF 200 MG)
     Route: 065

REACTIONS (24)
  - Pain [Unknown]
  - Aortic valve stenosis [Unknown]
  - Disease progression [Unknown]
  - Neck pain [Unknown]
  - Rotator cuff syndrome [Unknown]
  - Feeling abnormal [Unknown]
  - Asthenia [Unknown]
  - Spinal pain [Unknown]
  - Red blood cell sedimentation rate abnormal [Unknown]
  - Sacroiliitis [Unknown]
  - Antinuclear antibody [Unknown]
  - Dry eye [Unknown]
  - Musculoskeletal pain [Unknown]
  - Polymerase chain reaction positive [Unknown]
  - Aspartate aminotransferase abnormal [Unknown]
  - Alanine aminotransferase abnormal [Unknown]
  - Blood glucose abnormal [Unknown]
  - Pleuritic pain [Unknown]
  - Mean cell volume increased [Unknown]
  - Red blood cell sedimentation rate increased [Unknown]
  - Gastritis [Unknown]
  - Product use in unapproved indication [Unknown]
  - Drug ineffective [Unknown]
  - Treatment failure [Unknown]

NARRATIVE: CASE EVENT DATE: 20220426
